FAERS Safety Report 8437161-3 (Version None)
Quarter: 2012Q2

REPORT INFORMATION
  Report Type: 
  Country: None (occurrence: None)
  Receive Date: 20120614
  Receipt Date: 20120301
  Transmission Date: 20120825
  Serious: No
  Sender: FDA-Public Use
  Company Number: US-AMGEN-USASP2010006053

PATIENT
  Sex: Female
  Weight: 45.351 kg

DRUGS (6)
  1. PROLIA [Suspect]
     Indication: OSTEOPOROSIS POSTMENOPAUSAL
     Dosage: 60 MG, UNK
     Dates: start: 20101119
  2. ZANTAC [Concomitant]
  3. EVOXAC [Concomitant]
     Dosage: 30 MG, TID
     Dates: start: 20110914
  4. OSCAL D                            /00944201/ [Concomitant]
  5. VITAMIN C                          /00008001/ [Concomitant]
  6. OMEPRAZOLE [Concomitant]

REACTIONS (2)
  - DRY MOUTH [None]
  - COUGH [None]
